FAERS Safety Report 7632015-4 (Version None)
Quarter: 2011Q3

REPORT INFORMATION
  Report Type: 
  Country: None (occurrence: None)
  Receive Date: 20110725
  Receipt Date: 20101117
  Transmission Date: 20111222
  Serious: No
  Sender: FDA-Public Use
  Company Number: US-BRISTOL-MYERS SQUIBB COMPANY-14735963

PATIENT
  Age: 81 Year
  Sex: Female
  Weight: 76 kg

DRUGS (7)
  1. DIGOXIN [Concomitant]
  2. PREDNISONE [Concomitant]
  3. SPIRONOLACTONE [Concomitant]
  4. COUMADIN [Suspect]
     Dates: start: 20090801
  5. SOTALOL HCL [Concomitant]
  6. LIPITOR [Concomitant]
  7. FUROSEMIDE [Concomitant]

REACTIONS (4)
  - GAIT DISTURBANCE [None]
  - MALAISE [None]
  - NAUSEA [None]
  - DIZZINESS [None]
